FAERS Safety Report 4725896-5 (Version None)
Quarter: 2005Q3

REPORT INFORMATION
  Report Type: 
  Country: None (occurrence: None)
  Receive Date: 20050727
  Receipt Date: 20050309
  Transmission Date: 20060218
  Serious: Yes (Hospitalization, Disabling, Other)
  Sender: FDA-Public Use
  Company Number: US-MERCK-0503USA02039

PATIENT
  Age: 63 Year
  Sex: Male
  Weight: 95 kg

DRUGS (4)
  1. VIOXX [Suspect]
     Indication: ARTHRITIS
     Route: 048
     Dates: start: 19991006, end: 20001201
  2. VIOXX [Suspect]
     Route: 048
     Dates: start: 20020211, end: 20040629
  3. LIPITOR [Concomitant]
     Route: 065
     Dates: start: 19990101
  4. ASPIRIN [Concomitant]
     Route: 065
     Dates: start: 20000101

REACTIONS (7)
  - CARDIAC DISORDER [None]
  - CHEST PAIN [None]
  - CHRONIC OBSTRUCTIVE PULMONARY DISEASE [None]
  - HYPERTENSION [None]
  - MYOCARDIAL INFARCTION [None]
  - POLYTRAUMATISM [None]
  - SWELLING [None]
